FAERS Safety Report 5920273-3 (Version None)
Quarter: 2008Q4

REPORT INFORMATION
  Report Type: 
  Country: None (occurrence: None)
  Receive Date: 20081016
  Receipt Date: 20081006
  Transmission Date: 20090506
  Serious: Yes (Death, Life-Threatening, Other)
  Sender: FDA-Public Use
  Company Number: GB-JNJFOC-20081001452

PATIENT
  Sex: Male
  Weight: 69 kg

DRUGS (12)
  1. REMICADE [Suspect]
     Indication: RHEUMATOID ARTHRITIS
     Route: 042
  2. ATORVASTATIN CALCIUM [Concomitant]
  3. CALCICHEW [Concomitant]
  4. CLOPIDOGREL [Concomitant]
  5. FRUSEMIDE [Concomitant]
  6. GTN SPRAY [Concomitant]
  7. INSULIN [Concomitant]
  8. LANSOPRAZOLE [Concomitant]
  9. ACETAMINOPHEN [Concomitant]
  10. RISEDRONATE SODIUM [Concomitant]
  11. TRAMADOL HCL [Concomitant]
  12. LEFLUNOMIDE [Concomitant]

REACTIONS (1)
  - DEATH [None]
